FAERS Safety Report 16001628 (Version 1)
Quarter: 2019Q1

REPORT INFORMATION
  Report Type: Spontaneous
  Country: US (occurrence: US)
  Receive Date: 20190225
  Receipt Date: 20190225
  Transmission Date: 20190418
  Serious: No
  Sender: FDA-Public Use
  Company Number: US-ALLERGAN-1833308US

PATIENT
  Age: 48 Year
  Sex: Female

DRUGS (6)
  1. NORCO [Suspect]
     Active Substance: ACETAMINOPHEN\HYDROCODONE BITARTRATE
     Indication: PAIN
     Dosage: UNK
     Route: 065
  2. HUMIRA [Suspect]
     Active Substance: ADALIMUMAB
     Dosage: UNK UNK, Q WEEK
     Route: 058
     Dates: start: 20171013, end: 20171013
  3. HUMIRA [Suspect]
     Active Substance: ADALIMUMAB
     Indication: RHEUMATOID ARTHRITIS
     Dosage: UNK, Q WEEK
     Route: 058
     Dates: start: 20180630, end: 20180630
  4. HUMIRA [Suspect]
     Active Substance: ADALIMUMAB
     Dosage: UNK UNK, Q WEEK
     Route: 058
     Dates: start: 20170404, end: 20170404
  5. HUMIRA [Suspect]
     Active Substance: ADALIMUMAB
     Dosage: UNK UNK, Q WEEK
     Route: 058
     Dates: start: 20171215, end: 20171215
  6. PLAQUENIL [Concomitant]
     Active Substance: HYDROXYCHLOROQUINE SULFATE
     Dosage: UNK
     Route: 065
     Dates: start: 2018

REACTIONS (10)
  - Rash pruritic [Not Recovered/Not Resolved]
  - Alanine aminotransferase increased [Not Recovered/Not Resolved]
  - Aspartate aminotransferase increased [Not Recovered/Not Resolved]
  - Butterfly rash [Recovering/Resolving]
  - Rash [Recovered/Resolved]
  - Eczema [Recovering/Resolving]
  - Somnolence [Not Recovered/Not Resolved]
  - Menopausal symptoms [Not Recovered/Not Resolved]
  - Fatigue [Not Recovered/Not Resolved]
  - Photosensitivity reaction [Not Recovered/Not Resolved]

NARRATIVE: CASE EVENT DATE: 2018
